FAERS Safety Report 8497886-0 (Version None)
Quarter: 2012Q3

REPORT INFORMATION
  Report Type: 
  Country: None (occurrence: None)
  Receive Date: 20120709
  Receipt Date: 20120615
  Transmission Date: 20120928
  Serious: No
  Sender: FDA-Public Use
  Company Number: US-AMGEN-USASP2012037377

PATIENT
  Age: 73 Year
  Sex: Female

DRUGS (1)
  1. ENBREL [Suspect]
     Indication: RHEUMATOID ARTHRITIS
     Dosage: 50 MG, QWK
     Dates: start: 20120502

REACTIONS (10)
  - DECREASED APPETITE [None]
  - PARAESTHESIA [None]
  - HYPOAESTHESIA [None]
  - GAIT DISTURBANCE [None]
  - EPISTAXIS [None]
  - MEMORY IMPAIRMENT [None]
  - FATIGUE [None]
  - JOINT DESTRUCTION [None]
  - OEDEMA PERIPHERAL [None]
  - INJECTION SITE ERYTHEMA [None]
